FAERS Safety Report 25705345 (Version 1)
Quarter: 2025Q3

REPORT INFORMATION
  Report Type: Spontaneous
  Country: US (occurrence: None)
  Receive Date: 20250819
  Receipt Date: 20250819
  Transmission Date: 20251020
  Serious: Yes (Life-Threatening, Hospitalization)
  Sender: FDA-CTU
  Company Number: None

PATIENT
  Age: 73 Year
  Sex: Female

DRUGS (2)
  1. WARFARIN [Suspect]
     Active Substance: WARFARIN
  2. WARFARIN [Concomitant]
     Active Substance: WARFARIN

REACTIONS (6)
  - Sepsis [None]
  - Cellulitis [None]
  - Drug hypersensitivity [None]
  - Anticoagulation drug level above therapeutic [None]
  - Diverticulum intestinal [None]
  - Shock haemorrhagic [None]

NARRATIVE: CASE EVENT DATE: 20240301
